FAERS Safety Report 7583706-5 (Version None)
Quarter: 2011Q2

REPORT INFORMATION
  Report Type: 
  Country: None (occurrence: None)
  Receive Date: 20110630
  Receipt Date: 20110623
  Transmission Date: 20111010
  Serious: Yes (Hospitalization)
  Sender: FDA-Public Use
  Company Number: B0727992A

PATIENT
  Sex: Male

DRUGS (5)
  1. STABLON [Concomitant]
     Dosage: 1UNIT TWICE PER DAY
     Route: 048
  2. TRAMADOL HCL [Concomitant]
     Route: 048
  3. ARIXTRA [Suspect]
     Indication: DEEP VEIN THROMBOSIS
     Dosage: 7.5MG PER DAY
     Route: 058
     Dates: start: 20091101, end: 20091205
  4. FUMAFER [Concomitant]
     Dosage: 1UNIT PER DAY
     Route: 048
  5. ASPIRIN [Concomitant]
     Dates: start: 20090801, end: 20091101

REACTIONS (6)
  - ECCHYMOSIS [None]
  - PALLOR [None]
  - HAEMATOMA [None]
  - ASTHENIA [None]
  - HYPOTENSION [None]
  - ANAEMIA [None]
